FAERS Safety Report 18166233 (Version 1)
Quarter: 2020Q3

REPORT INFORMATION
  Report Type: Spontaneous
  Country: GB (occurrence: GB)
  Receive Date: 20200819
  Receipt Date: 20200819
  Transmission Date: 20201103
  Serious: Yes (Other)
  Sender: FDA-Public Use
  Company Number: GB-TEVA-2020-GB-1815510

PATIENT
  Age: 4 Year
  Sex: Male
  Weight: 12.6 kg

DRUGS (1)
  1. OXYBUTYNIN HYDROCHLORIDE [Suspect]
     Active Substance: OXYBUTYNIN CHLORIDE
     Indication: POLLAKIURIA
     Route: 048
     Dates: start: 20190902, end: 20200716

REACTIONS (1)
  - Hallucinations, mixed [Recovered/Resolved]

NARRATIVE: CASE EVENT DATE: 20200516
